FAERS Safety Report 21837768 (Version 9)
Quarter: 2023Q2

REPORT INFORMATION
  Report Type: Report from Study
  Country: BG (occurrence: BG)
  Receive Date: 20230109
  Receipt Date: 20230628
  Transmission Date: 20230721
  Serious: Yes (Hospitalization)
  Sender: FDA-Public Use
  Company Number: BG-AKCEA THERAPEUTICS, INC.-2022IS004281

PATIENT

DRUGS (15)
  1. TEGSEDI [Suspect]
     Active Substance: INOTERSEN SODIUM
     Indication: Familial amyloidosis
     Dosage: 284 MILLIGRAM, QW
     Route: 065
     Dates: start: 202107
  2. TEGSEDI [Suspect]
     Active Substance: INOTERSEN SODIUM
     Dosage: 284 MILLIGRAM, QOW
     Route: 058
     Dates: start: 202107
  3. VITAMIN A [Concomitant]
     Active Substance: VITAMIN A
     Indication: Product used for unknown indication
     Dosage: 2500 E, QD
     Route: 065
  4. ELIQUIS [Concomitant]
     Active Substance: APIXABAN
     Indication: Atrial fibrillation
     Dosage: 5 MILLIGRAM, BID
     Route: 065
  5. ELIQUIS [Concomitant]
     Active Substance: APIXABAN
     Indication: Cardiac amyloidosis
     Dosage: 2.5 MILLIGRAM, BID
     Route: 048
     Dates: start: 202204
  6. PREGABALIN [Concomitant]
     Active Substance: PREGABALIN
     Indication: Product used for unknown indication
     Dosage: 75 MILLIGRAM IN THE EVENING
     Route: 065
  7. AMIODARONE HYDROCHLORIDE [Concomitant]
     Active Substance: AMIODARONE HYDROCHLORIDE
     Indication: Product used for unknown indication
     Dosage: 200 MILLIGRAM IN THE MORNING
     Route: 065
  8. CIPROFLOXACIN [Concomitant]
     Active Substance: CIPROFLOXACIN
     Indication: Product used for unknown indication
     Dosage: 500 MILLIGRAM, BID, FOR 7 DAYS
     Route: 065
  9. FUROSEMIDE [Concomitant]
     Active Substance: FUROSEMIDE
     Indication: Cardiac amyloidosis
     Dosage: 40 MILLIGRAM, QD
     Route: 048
  10. FUROSEMIDE [Concomitant]
     Active Substance: FUROSEMIDE
     Dosage: 20 MILLIGRAM, QD
     Route: 048
     Dates: start: 202212
  11. SPIRONOLACTONE [Concomitant]
     Active Substance: SPIRONOLACTONE
     Indication: Cardiac amyloidosis
     Dosage: 1 TAB PER DAY
     Route: 048
     Dates: start: 202212
  12. NEORENAL SR [Concomitant]
     Indication: Product used for unknown indication
     Dosage: 1 TAB TWICE A DAY FOR 1 MONTH
     Route: 065
  13. ASPIRIN [Concomitant]
     Active Substance: ASPIRIN
     Indication: Antiplatelet therapy
     Route: 065
  14. PLAVIX [Concomitant]
     Active Substance: CLOPIDOGREL BISULFATE
     Indication: Antiplatelet therapy
     Dosage: UNKNOWN
     Route: 065
  15. PREGABALIN [Concomitant]
     Active Substance: PREGABALIN
     Indication: Hereditary neuropathic amyloidosis
     Dosage: 75 MILLIGRAM, QD
     Route: 048
     Dates: start: 202102

REACTIONS (38)
  - Asthenia [Recovered/Resolved]
  - Dehydration [Recovered/Resolved]
  - Decreased appetite [Recovered/Resolved]
  - Haemoglobin decreased [Recovered/Resolved]
  - Urinary tract infection [Recovered/Resolved]
  - Blood creatinine increased [Recovered/Resolved]
  - White blood cells urine positive [Recovering/Resolving]
  - Anaemia [Recovered/Resolved]
  - Hypotension [Recovered/Resolved]
  - Fatigue [Recovered/Resolved]
  - Glomerular filtration rate decreased [Recovered/Resolved]
  - Cachexia [Recovered/Resolved]
  - C-reactive protein increased [Recovered/Resolved]
  - Bacterial test positive [Recovered/Resolved]
  - Oliguria [Recovered/Resolved]
  - Nausea [Recovered/Resolved]
  - Urosepsis [Recovered/Resolved]
  - Vomiting [Recovered/Resolved]
  - Enterococcus test positive [Recovered/Resolved]
  - Weight decreased [Recovered/Resolved]
  - Diarrhoea [Recovered/Resolved]
  - White blood cell count abnormal [Recovered/Resolved]
  - Red blood cell count decreased [Recovered/Resolved]
  - Mean platelet volume increased [Recovered/Resolved]
  - Platelet distribution width decreased [Recovered/Resolved]
  - Haematocrit decreased [Recovered/Resolved]
  - Platelet count decreased [Recovered/Resolved]
  - Protein urine present [Recovered/Resolved]
  - Urine protein/creatinine ratio increased [Recovered/Resolved]
  - Dysphagia [Recovered/Resolved]
  - Chills [Recovered/Resolved]
  - Yellow skin [Recovered/Resolved]
  - Hyperhidrosis [Recovered/Resolved]
  - Feeling hot [Recovered/Resolved]
  - Gait disturbance [Recovered/Resolved]
  - Tremor [Recovered/Resolved]
  - Creatinine urine decreased [Unknown]
  - Diarrhoea [Unknown]

NARRATIVE: CASE EVENT DATE: 20220601
